FAERS Safety Report 13521841 (Version 3)
Quarter: 2017Q3

REPORT INFORMATION
  Report Type: Spontaneous
  Country: US (occurrence: US)
  Receive Date: 20170508
  Receipt Date: 20170808
  Transmission Date: 20171127
  Serious: Yes (Hospitalization, Other)
  Sender: FDA-Public Use
  Company Number: US-009507513-1705USA003280

PATIENT
  Sex: Female
  Weight: 79.37 kg

DRUGS (3)
  1. NUVARING [Suspect]
     Active Substance: ETHINYL ESTRADIOL\ETONOGESTREL
     Indication: HEADACHE
  2. NUVARING [Suspect]
     Active Substance: ETHINYL ESTRADIOL\ETONOGESTREL
     Indication: ACNE
     Dosage: 1 DF, THREE WEEKS IN, ONE WEEK OUT
     Route: 067
     Dates: start: 200910
  3. NUVARING [Suspect]
     Active Substance: ETHINYL ESTRADIOL\ETONOGESTREL
     Indication: CONTRACEPTION
     Dosage: 0.12-0.015 MG/24 HR RING, 1 RING VAGINALLY FOR 3 WEEKS AND REMOVE FOR 1 WEEK
     Route: 067
     Dates: start: 2005, end: 20150512

REACTIONS (9)
  - Factor V Leiden mutation [Unknown]
  - Pulmonary embolism [Unknown]
  - Arthroscopic surgery [Recovering/Resolving]
  - Swelling [Unknown]
  - Cardiac ventricular disorder [Unknown]
  - Deep vein thrombosis [Unknown]
  - Orthopaedic procedure [Recovering/Resolving]
  - Product use in unapproved indication [Unknown]
  - Blood disorder [Unknown]

NARRATIVE: CASE EVENT DATE: 201412
